FAERS Safety Report 19746127 (Version 4)
Quarter: 2021Q4

REPORT INFORMATION
  Report Type: Report from Study
  Country: JP (occurrence: JP)
  Receive Date: 20210826
  Receipt Date: 20211110
  Transmission Date: 20220304
  Serious: Yes (Other)
  Sender: FDA-Public Use
  Company Number: JP-KYOWAKIRIN-2021AKK014429

PATIENT
  Age: 74 Year
  Sex: Male

DRUGS (1)
  1. ROMIPLOSTIM [Suspect]
     Active Substance: ROMIPLOSTIM
     Indication: Aplastic anaemia
     Dosage: UNK (MAXIMUM DOSE)
     Route: 058

REACTIONS (3)
  - Pulmonary alveolar haemorrhage [Recovering/Resolving]
  - Off label use [Unknown]
  - Coccydynia [Recovered/Resolved]

NARRATIVE: CASE EVENT DATE: 20200101
